FAERS Safety Report 8815707 (Version 1)
Quarter: 2012Q4

REPORT INFORMATION
  Report Type: 
  Country: US (occurrence: US)
  Receive Date: 20120928
  Receipt Date: 20120928
  Transmission Date: 20130627
  Serious: No
  Sender: FDA-Public Use
  Company Number: US-VERTEX PHARMACEUTICAL INC.-2012-020425

PATIENT

DRUGS (3)
  1. VX-950 [Suspect]
     Indication: HEPATITIS C
     Dosage: UNK
     Route: 048
     Dates: start: 20120602, end: 20120811
  2. PEGINTRON                          /01543001/ [Concomitant]
     Indication: HEPATITIS C
     Dosage: UNK
     Dates: start: 20120602, end: 20120811
  3. RIBAVIRIN [Concomitant]
     Indication: HEPATITIS C
     Dosage: UNK
     Dates: start: 20120602, end: 20120811

REACTIONS (3)
  - Somnolence [Recovered/Resolved]
  - Vertigo [Recovered/Resolved]
  - Fatigue [Recovered/Resolved]
